FAERS Safety Report 7658558-5 (Version None)
Quarter: 2011Q3

REPORT INFORMATION
  Report Type: 
  Country: None (occurrence: None)
  Receive Date: 20110805
  Receipt Date: 20110727
  Transmission Date: 20111222
  Serious: Yes (Other)
  Sender: FDA-Public Use
  Company Number: FR-SANOFI-AVENTIS-2011SA049075

PATIENT
  Age: 60 Year
  Sex: Female

DRUGS (3)
  1. PREDNISONE [Concomitant]
     Dates: start: 20081201
  2. LEFLUNOMIDE [Suspect]
     Indication: RHEUMATOID ARTHRITIS
     Route: 065
     Dates: start: 20081201, end: 20090511
  3. METHOTREXATE [Suspect]
     Route: 065

REACTIONS (6)
  - PHOTOSENSITIVITY REACTION [None]
  - SKIN LESION [None]
  - SKIN PLAQUE [None]
  - MUSCLE ENZYME INCREASED [None]
  - RHABDOMYOLYSIS [None]
  - LEUKOPENIA [None]
